FAERS Safety Report 18425308 (Version 1)
Quarter: 2020Q4

REPORT INFORMATION
  Report Type: Spontaneous
  Country: US (occurrence: US)
  Receive Date: 20201024
  Receipt Date: 20201024
  Transmission Date: 20210114
  Serious: Yes (Hospitalization)
  Sender: FDA-Public Use
  Company Number: None

PATIENT
  Age: 54 Year
  Sex: Male
  Weight: 125.1 kg

DRUGS (1)
  1. OTEZLA [Suspect]
     Active Substance: APREMILAST
     Indication: PSORIATIC ARTHROPATHY
     Route: 048
     Dates: start: 20191115, end: 20191207

REACTIONS (5)
  - Pain in extremity [None]
  - Lividity [None]
  - Gait disturbance [None]
  - Muscle spasms [None]
  - Peripheral swelling [None]

NARRATIVE: CASE EVENT DATE: 20191203
